FAERS Safety Report 19473148 (Version 1)
Quarter: 2021Q2

REPORT INFORMATION
  Report Type: Spontaneous
  Country: US (occurrence: US)
  Receive Date: 20210629
  Receipt Date: 20210629
  Transmission Date: 20210717
  Serious: No
  Sender: FDA-Public Use
  Company Number: US-ORGANON-O2106USA002097

PATIENT
  Sex: Female

DRUGS (6)
  1. ESTRADIOL. [Concomitant]
     Active Substance: ESTRADIOL
     Dosage: UNK
  2. GANIRELIX [Suspect]
     Active Substance: GANIRELIX
     Dosage: UNK
  3. DEXAMETHASONE. [Concomitant]
     Active Substance: DEXAMETHASONE
     Dosage: UNK
  4. FOLLISTIM AQ [Suspect]
     Active Substance: FOLLITROPIN
     Indication: INFERTILITY FEMALE
     Dosage: 175 TO 200 UNITS, QD X 10?14 D, SQ? AS DIRECTED, STRENGTH: 900 IU/1.08 ML
     Route: 058
     Dates: start: 20191002
  5. MENOPUR [Concomitant]
     Active Substance: FOLLITROPIN\LUTEINIZING HORMONE
     Dosage: UNK
  6. AZITHROMYCIN ANHYDROUS. [Concomitant]
     Active Substance: AZITHROMYCIN ANHYDROUS
     Dosage: UNK

REACTIONS (1)
  - Injection site pain [Unknown]
